FAERS Safety Report 8227607-8 (Version None)
Quarter: 2012Q1

REPORT INFORMATION
  Report Type: 
  Country: None (occurrence: None)
  Receive Date: 20120322
  Receipt Date: 20120312
  Transmission Date: 20120608
  Serious: Yes (Other)
  Sender: FDA-Public Use
  Company Number: CA-ELI_LILLY_AND_COMPANY-CA201203003068

PATIENT
  Sex: Male
  Weight: 128 kg

DRUGS (5)
  1. ZYPREXA ZYDIS [Suspect]
     Indication: SCHIZOPHRENIA
     Dosage: 20 MG, QD
     Dates: start: 20110701, end: 20120301
  2. VALPROIC ACID [Concomitant]
     Dosage: 750 MG, EACH EVENING
  3. ABILIFY [Concomitant]
     Dosage: 15 MG, QD
  4. ZYPREXA ZYDIS [Suspect]
     Dosage: 10 MG, QD
     Dates: start: 20120301
  5. RISPERDAL CONSTA [Concomitant]
     Dosage: 37.5 MG, EVERY TWO WEEKS

REACTIONS (3)
  - WEIGHT INCREASED [None]
  - INCREASED APPETITE [None]
  - SKIN STRIAE [None]
